FAERS Safety Report 6379364-8 (Version None)
Quarter: 2009Q3

REPORT INFORMATION
  Report Type: 
  Country: None (occurrence: None)
  Receive Date: 20090923
  Receipt Date: 20090923
  Transmission Date: 20100115
  Serious: No
  Sender: FDA-Public Use
  Company Number: None

PATIENT
  Age: 82 Year
  Sex: Female
  Weight: 60.6 kg

DRUGS (15)
  1. GARGINE INSULIN [Suspect]
     Indication: TYPE 1 DIABETES MELLITUS
     Dosage: 20 UNITS SQ  Q DAILY
     Dates: start: 20081114, end: 20081117
  2. ASPART [Suspect]
     Indication: TYPE 1 DIABETES MELLITUS
     Dosage: 12 UNITS SQ (SSI)
     Dates: start: 20081114, end: 20081117
  3. ACETAMINOPHEN [Concomitant]
  4. CITALOPRAM [Concomitant]
  5. DILTIAZEM [Concomitant]
  6. DOXYCYCLINE [Concomitant]
  7. LACTULOSE [Concomitant]
  8. LANSOPRAZOLE [Concomitant]
  9. LORAZEPAM [Concomitant]
  10. METOPROLOL [Concomitant]
  11. POTASSIUM CHLORIDE [Concomitant]
  12. PRAVASTATIN [Concomitant]
  13. PREDNISONE [Concomitant]
  14. ALBUTEROL [Concomitant]
  15. ADVAIR DISKUS 100/50 [Concomitant]

REACTIONS (4)
  - BLOOD GLUCOSE DECREASED [None]
  - BLOOD GLUCOSE INCREASED [None]
  - CHRONIC OBSTRUCTIVE PULMONARY DISEASE [None]
  - CONFUSIONAL STATE [None]
